FAERS Safety Report 7963815 (Version 3)
Quarter: 2014Q2

REPORT INFORMATION
  Report Type: Spontaneous
  Country: US (occurrence: US)
  Receive Date: 20110527
  Receipt Date: 20140515
  Transmission Date: 20141212
  Serious: Yes (Life-Threatening, Hospitalization)
  Sender: FDA-Public Use
  Company Number: US-MYLANLABS-2011S1009990

PATIENT
  Age: 13 Year
  Sex: Female

DRUGS (19)
  1. AMITRIPTYLINE HYDROCHLORIDE TABLETS, USP [Suspect]
     Indication: OVERDOSE
     Dosage: UNKNOWN QUANTITY OF 150MG TABLETS
     Route: 048
  2. LIPID EMULSION [Suspect]
     Indication: CARDIAC ARREST
     Dosage: 20% LIPID EMULSION; GIVEN OVER 3MIN, 5MIN APART; THEN 0.25 MG/KG/MIN INFUSION
     Route: 040
  3. LIPID EMULSION [Suspect]
     Indication: CARDIAC ARREST
     Dosage: CONTINUOUS INFUSION OF 0.25 MG/KG/MIN FOR 30MIN
     Route: 041
  4. ETOMIDATE [Concomitant]
     Indication: ENDOTRACHEAL INTUBATION
     Dosage: RECEIVED IN THE EMERGENCY DEPARTMENT
  5. VECURONIUM BROMIDE [Concomitant]
     Indication: ENDOTRACHEAL INTUBATION
     Dosage: RECEIVED IN EMERGENCY DEPARTMENT
  6. MIDAZOLAM [Concomitant]
     Indication: SEDATIVE THERAPY
     Dosage: INFUSION OF 2 MG/H; PLUS 4MG SUPPLEMENTAL; STARTED IN ICU
  7. FENTANYL [Concomitant]
     Indication: ANALGESIC THERAPY
     Dosage: INFUSION OF 50 MICROG/HR; STARTED IN ICU
  8. SODIUM BICARBONATE [Concomitant]
     Indication: TOXICITY TO VARIOUS AGENTS
     Dosage: 150MEQ/L SODIUM BICARB, 40MEQ/L POTASSIUM IN 5% DEXTROSE AT 125ML/H; STARTED 7H AFTER INGESTION
  9. POTASSIUM [Concomitant]
     Indication: TOXICITY TO VARIOUS AGENTS
     Dosage: 150MEQ/L SODIUM BICARB, 40MEQ/L POTASSIUM IN 5% DEXTROSE AT 125ML/H; STARTED 7H AFTER INGESTION
  10. MIDAZOLAM [Concomitant]
     Indication: SEDATIVE THERAPY
     Dosage: 4MG TOTAL SUPPLEMENTAL DOSES; LATER RECEIVED 10MG DURING CPR; RECEIVED THROUGHOUT 1ST NIGHT
  11. LORAZEPAM [Concomitant]
     Indication: CONVULSION
     Dosage: 20MG TOTAL; RECEIVED ADDITIONAL DOSES DURING CPR
     Route: 042
  12. EPINEPHRINE [Concomitant]
     Indication: CARDIAC ARREST
     Dosage: BOLUS DOSES; RECEIVED DURING CPR
  13. MAGNESIUM SULFATE [Concomitant]
     Indication: CARDIAC ARREST
     Dosage: 2G TOTAL; RECEIVED DURING CPR
  14. LIDOCAINE [Concomitant]
     Indication: CARDIAC ARREST
     Dosage: RECEIVED DURING CPR
     Route: 042
  15. MIDAZOLAM [Concomitant]
     Indication: CARDIAC ARREST
     Dosage: 10MG TOTAL; RECEIVED DURING CPR
     Route: 042
  16. LORAZEPAM [Concomitant]
     Indication: CARDIAC ARREST
     Dosage: ADDITIONAL DOSES
  17. PHENOBARBITAL [Concomitant]
     Indication: CARDIAC ARREST
     Dosage: ADMINISTERED ALMOST SIMULTANEOUSLY WITH LIPID EMULSION
  18. NOREPINEPHRINE [Concomitant]
     Indication: CARDIAC ARREST
     Dosage: INFUSION; RECEIVED AFTER CARDIAC ARREST
  19. DOPAMINE [Concomitant]
     Indication: CARDIAC ARREST
     Dosage: INFUSION; RECEIVED AFTER CARDIAC ARREST

REACTIONS (11)
  - Overdose [Recovered/Resolved]
  - Convulsion [Recovered/Resolved]
  - Cardiac arrest [Recovered/Resolved]
  - Coma [Recovered/Resolved]
  - Pancreatitis [Recovered/Resolved]
  - Thrombophlebitis [Recovered/Resolved]
  - Torsade de pointes [Recovered/Resolved]
  - Respiratory depression [Recovered/Resolved]
  - Acute respiratory distress syndrome [Recovered/Resolved]
  - Hyperlipidaemia [Recovered/Resolved]
  - Laboratory test interference [Recovered/Resolved]
